FAERS Safety Report 4683713-6 (Version None)
Quarter: 2005Q2

REPORT INFORMATION
  Report Type: 
  Country: None (occurrence: None)
  Receive Date: 20050607
  Receipt Date: 20050526
  Transmission Date: 20051028
  Serious: Yes (Hospitalization)
  Sender: FDA-Public Use
  Company Number: TW-BRISTOL-MYERS SQUIBB COMPANY-12984027

PATIENT
  Age: 59 Year
  Sex: Female
  Weight: 58 kg

DRUGS (19)
  1. CISPLATIN [Suspect]
     Indication: CERVIX CARCINOMA
     Route: 042
     Dates: start: 20040730, end: 20040730
  2. CAMPTOSAR [Suspect]
     Indication: CERVIX CARCINOMA
     Route: 041
     Dates: start: 20040731, end: 20040731
  3. FUROSEMIDE [Concomitant]
     Route: 042
     Dates: start: 20040730, end: 20040730
  4. DIMETICONE [Concomitant]
     Route: 048
     Dates: start: 20040718, end: 20040801
  5. ACETAMINOPHEN [Concomitant]
  6. LOPERAMIDE [Concomitant]
     Route: 048
     Dates: start: 20040718, end: 20040721
  7. METOCLOPRAMIDE HCL [Concomitant]
     Route: 048
     Dates: start: 20040718
  8. LORAZEPAM [Concomitant]
     Route: 048
     Dates: start: 20040718
  9. AMLODIPINE [Concomitant]
     Route: 048
     Dates: start: 20040718
  10. PARACETAMOL [Concomitant]
     Route: 048
     Dates: start: 20040731
  11. SODIUM CHLORIDE [Concomitant]
     Route: 042
     Dates: start: 20040730, end: 20040730
  12. DEXAMETHASONE [Concomitant]
     Route: 042
     Dates: start: 20040730, end: 20040731
  13. ATROPINE [Concomitant]
     Route: 042
     Dates: start: 20040730, end: 20040731
  14. GLUCOSE [Concomitant]
     Route: 042
     Dates: start: 20040730, end: 20040730
  15. ONDANSETRON [Concomitant]
     Route: 042
     Dates: start: 20040730, end: 20040730
  16. BIOFERMIN [Concomitant]
  17. DEXTROSE 5% [Concomitant]
  18. RINGERS SOLUTION, LACTATED [Concomitant]
  19. NORMAL SALINE [Concomitant]

REACTIONS (3)
  - DIARRHOEA [None]
  - GRANULOCYTOPENIA [None]
  - PYREXIA [None]
